FAERS Safety Report 17145782 (Version 1)
Quarter: 2019Q4

REPORT INFORMATION
  Report Type: Spontaneous
  Country: PT (occurrence: PT)
  Receive Date: 20191212
  Receipt Date: 20191212
  Transmission Date: 20200122
  Serious: Yes (Disabling)
  Sender: FDA-Public Use
  Company Number: PT-SAMSUNG BIOEPIS-SB-2019-36661

PATIENT
  Age: 28 Year
  Sex: Female

DRUGS (1)
  1. IMRALDI [Suspect]
     Active Substance: ADALIMUMAB
     Indication: CROHN^S DISEASE
     Dosage: UNKNOWN
     Route: 058
     Dates: start: 201903

REACTIONS (6)
  - Pruritus [Unknown]
  - Asthenia [Unknown]
  - Fatigue [Unknown]
  - Injection site pruritus [Unknown]
  - Somnolence [Unknown]
  - Product substitution issue [Unknown]

NARRATIVE: CASE EVENT DATE: 201903
